FAERS Safety Report 17084474 (Version 1)
Quarter: 2019Q4

REPORT INFORMATION
  Report Type: Spontaneous
  Country: AU (occurrence: AU)
  Receive Date: 20191127
  Receipt Date: 20191127
  Transmission Date: 20200122
  Serious: Yes (Life-Threatening, Other)
  Sender: FDA-Public Use
  Company Number: SE-GLAXOSMITHKLINE-AU2019210130

PATIENT
  Age: 72 Year
  Sex: Female

DRUGS (5)
  1. RANITIDINE. [Suspect]
     Active Substance: RANITIDINE
     Indication: PRODUCT USED FOR UNKNOWN INDICATION
     Dosage: 150 MG, QD
     Route: 048
     Dates: end: 20010127
  2. FELODIPINE. [Suspect]
     Active Substance: FELODIPINE
     Dosage: UNK
     Route: 048
     Dates: end: 20010127
  3. METFORMIN HYDROCHLORIDE. [Suspect]
     Active Substance: METFORMIN HYDROCHLORIDE
     Indication: DIABETES MELLITUS
     Dosage: 2 G, QD
     Route: 048
     Dates: end: 20010127
  4. DOXEPIN HYDROCHLORIDE. [Suspect]
     Active Substance: DOXEPIN HYDROCHLORIDE
     Dosage: UNK
     Route: 065
     Dates: end: 20010127
  5. CYANOCOBALAMIN. [Suspect]
     Active Substance: CYANOCOBALAMIN
     Indication: PRODUCT USED FOR UNKNOWN INDICATION
     Dosage: UNK
     Route: 065
     Dates: end: 20010127

REACTIONS (3)
  - Acute kidney injury [Recovered/Resolved]
  - Hypokalaemia [Recovered/Resolved]
  - Vomiting [Recovered/Resolved]

NARRATIVE: CASE EVENT DATE: 20010127
